FAERS Safety Report 8565504-9 (Version None)
Quarter: 2012Q3

REPORT INFORMATION
  Report Type: 
  Country: None (occurrence: None)
  Receive Date: 20120724
  Receipt Date: 20120716
  Transmission Date: 20120928
  Serious: Yes (Life-Threatening, Hospitalization, Disabling, Other)
  Sender: FDA-Public Use
  Company Number: DSA_57767_2012

PATIENT
  Sex: Male

DRUGS (16)
  1. SINGULAIR [Suspect]
     Indication: MULTIPLE ALLERGIES
     Dosage: ( 4 MG 4D)
  2. SODIUM CHLORIDE [Concomitant]
  3. IZOFRAN /00955301/ [Concomitant]
  4. ELIDEL [Suspect]
     Indication: DERMATITIS ATOPIC
     Dosage: (DF TOPICAL)
     Route: 061
  5. IMURAN [Suspect]
     Indication: PRODUCT USED FOR UNKNOWN INDICATION
     Dosage: (50 MG QD)
  6. VENTOLIN HFA [Concomitant]
  7. ALOPRIM [Concomitant]
  8. PROTONIX [Concomitant]
  9. VALIUM [Concomitant]
  10. HYDROMORPHONE HYDROCHLORIDE [Concomitant]
  11. DILAUDID [Concomitant]
  12. NUBAIN [Concomitant]
  13. NARCAN [Concomitant]
  14. PROGRAF [Suspect]
     Indication: PRODUCT USED FOR UNKNOWN INDICATION
     Dosage: (2 MG BID)
  15. D-51/2 NS + KCL [Concomitant]
  16. MEFOXIN [Concomitant]

REACTIONS (38)
  - EPSTEIN-BARR VIRUS TEST POSITIVE [None]
  - BLOOD ALBUMIN DECREASED [None]
  - BLOOD POTASSIUM DECREASED [None]
  - BLOOD MAGNESIUM DECREASED [None]
  - ASCITES [None]
  - CHAPPED LIPS [None]
  - SEPSIS [None]
  - WHITE BLOOD CELL COUNT INCREASED [None]
  - BLOOD ALKALINE PHOSPHATASE DECREASED [None]
  - PLEURAL EFFUSION [None]
  - HYPOTENSION [None]
  - HYPERTENSION [None]
  - RED BLOOD CELL COUNT DECREASED [None]
  - HAEMATOCRIT DECREASED [None]
  - ANION GAP INCREASED [None]
  - ALANINE AMINOTRANSFERASE DECREASED [None]
  - ATELECTASIS [None]
  - CARBON DIOXIDE DECREASED [None]
  - BLOOD CALCIUM DECREASED [None]
  - ASPARTATE AMINOTRANSFERASE INCREASED [None]
  - BLOOD SODIUM DECREASED [None]
  - BLOOD CHLORIDE DECREASED [None]
  - SMALL INTESTINAL OBSTRUCTION [None]
  - RENAL FAILURE [None]
  - BURKITT'S LYMPHOMA STAGE II [None]
  - INTUSSUSCEPTION [None]
  - BLOOD GLUCOSE INCREASED [None]
  - BLOOD PHOSPHORUS DECREASED [None]
  - BLOOD URIC ACID INCREASED [None]
  - SOMNOLENCE [None]
  - LIP DRY [None]
  - FEBRILE NEUTROPENIA [None]
  - IMMUNOSUPPRESSANT DRUG LEVEL DECREASED [None]
  - HEART RATE INCREASED [None]
  - NAUSEA [None]
  - ELECTROLYTE DEPLETION [None]
  - PROTEIN TOTAL DECREASED [None]
  - CONSTIPATION [None]
